FAERS Safety Report 9394965 (Version 1)
Quarter: 2013Q3

REPORT INFORMATION
  Report Type: Spontaneous
  Country: US (occurrence: US)
  Receive Date: 20130711
  Receipt Date: 20130711
  Transmission Date: 20140515
  Serious: Yes (Death)
  Sender: FDA-Public Use
  Company Number: US-COVIDIEN/TYCO HEALTHCARE/MALLINCKRODT-T201204389

PATIENT
  Age: 58 Year
  Sex: Male
  Weight: 90.7 kg

DRUGS (6)
  1. OXYCODONE [Suspect]
     Indication: BACK PAIN
     Dosage: 5 MG FOUR TIMES A DAY
     Route: 048
     Dates: start: 201206
  2. GABAPENTIN [Concomitant]
     Indication: PAIN
     Dosage: UNK
  3. BACLOFEN [Concomitant]
     Indication: MUSCLE SPASMS
     Dosage: UNK
  4. PRILOSEC                           /00661201/ [Concomitant]
     Indication: GASTROOESOPHAGEAL REFLUX DISEASE
     Dosage: UNK
  5. METFORMIN [Concomitant]
     Indication: DIABETES MELLITUS
     Dosage: UNK
  6. LISINOPRIL [Concomitant]
     Indication: HYPERTENSION
     Dosage: UNK

REACTIONS (2)
  - Drug screen negative [Not Recovered/Not Resolved]
  - Drug effect decreased [Unknown]
